FAERS Safety Report 9422926 (Version 2)
Quarter: 2013Q3

REPORT INFORMATION
  Report Type: Spontaneous
  Country: US (occurrence: US)
  Receive Date: 20130726
  Receipt Date: 20130827
  Transmission Date: 20140515
  Serious: Yes (Other)
  Sender: FDA-Public Use
  Company Number: US-JNJFOC-20130712433

PATIENT
  Age: 49 Year
  Sex: Male
  Weight: 79.38 kg

DRUGS (11)
  1. REMICADE [Suspect]
     Indication: SERONEGATIVE ARTHRITIS
     Route: 042
  2. REMICADE [Suspect]
     Indication: SERONEGATIVE ARTHRITIS
     Dosage: 100 MG STRENGTH, REINTRODUCED
     Route: 042
     Dates: start: 20130228
  3. ZEGERID [Concomitant]
     Dosage: 40-1100 MG ON AN EMPTY STOMACH TWICE A DAY.
     Route: 065
  4. CITALOPRAM HYDROBROMIDE [Concomitant]
     Route: 065
  5. FISH OIL [Concomitant]
     Dosage: WITH A MEAL
     Route: 065
  6. VITAMIN C [Concomitant]
     Route: 065
  7. PREDNISONE [Concomitant]
     Dosage: THREE 20 MG TABLET WITH FOOD OR MILK
     Route: 048
  8. LEVAQUIN [Concomitant]
     Route: 065
  9. CIPROFLOXACIN HCL [Concomitant]
     Dosage: 1 TABLET WITH THE EVENING MEAL ONCE A DAY.
     Route: 065
  10. CALCIUM [Concomitant]
     Dosage: WITH MEALS
     Route: 065
  11. PROBIOTIC [Concomitant]
     Dosage: AS DIRECTED
     Route: 065

REACTIONS (6)
  - Joint swelling [Recovered/Resolved]
  - Pain [Recovered/Resolved]
  - Pleurisy [Unknown]
  - Rash erythematous [Recovered/Resolved]
  - Fatigue [Unknown]
  - Feeling of body temperature change [Unknown]
